FAERS Safety Report 4710960-7 (Version None)
Quarter: 2005Q3

REPORT INFORMATION
  Report Type: 
  Country: None (occurrence: None)
  Receive Date: 20050708
  Receipt Date: 20050620
  Transmission Date: 20060218
  Serious: Yes (Hospitalization)
  Sender: FDA-Public Use
  Company Number: BRO-008680

PATIENT
  Age: 73 Year
  Sex: Female

DRUGS (3)
  1. IOPAMIDOL-300 [Suspect]
     Indication: ANGIOGRAM
     Dosage: 50 ML
     Route: 013
     Dates: start: 20050415, end: 20050415
  2. OMNIPAQUE 140 [Suspect]
     Indication: CEREBRAL INFARCTION
     Dosage: 100 ML
     Route: 042
     Dates: start: 20050411, end: 20050411
  3. TICLOPIDINE HCL [Suspect]
     Indication: CEREBRAL INFARCTION
     Dosage: 100 MG
     Route: 048
     Dates: start: 20050407, end: 20050420

REACTIONS (10)
  - BLOOD ALKALINE PHOSPHATASE INCREASED [None]
  - CAROTID ARTERY STENOSIS [None]
  - CEREBRAL INFARCTION [None]
  - DRUG ERUPTION [None]
  - DRUG HYPERSENSITIVITY [None]
  - LIVER DISORDER [None]
  - PYREXIA [None]
  - SKIN TEST POSITIVE [None]
  - URTICARIA GENERALISED [None]
  - VOMITING [None]
